FAERS Safety Report 14505669 (Version 5)
Quarter: 2022Q1

REPORT INFORMATION
  Report Type: Spontaneous
  Country: PL (occurrence: PL)
  Receive Date: 20180208
  Receipt Date: 20220318
  Transmission Date: 20220423
  Serious: Yes (Hospitalization, Other)
  Sender: FDA-Public Use
  Company Number: PL-AUROBINDO-AUR-APL-2018-005241

PATIENT
  Age: 39 Year
  Sex: Male

DRUGS (10)
  1. ATORVASTATIN [Suspect]
     Active Substance: ATORVASTATIN
     Indication: Atrial fibrillation
     Dosage: 1 DOSAGE FORM, ONCE A DAY (QD) IN EVENING.
     Route: 065
  2. BISOPROLOL [Suspect]
     Active Substance: BISOPROLOL
     Indication: Atrial fibrillation
     Dosage: 1 DOSAGE FORM, ONCE A DAY (QD)
     Route: 065
  3. ASPIRIN [Suspect]
     Active Substance: ASPIRIN
     Indication: Anticoagulant therapy
     Dosage: 150 MILLIGRAM, ONCE A DAY (QD)
     Route: 065
  4. AMLODIPINE BESYLATE\LISINOPRIL [Suspect]
     Active Substance: AMLODIPINE BESYLATE\LISINOPRIL
     Indication: Atrial fibrillation
     Dosage: ONE TABLET IN THE MORNING AND HALF TABLET IN EVENING
     Route: 065
  5. DABIGATRAN [Suspect]
     Active Substance: DABIGATRAN
     Indication: Atrial fibrillation
     Dosage: 150 MG, BID FOR 8 WEEKS
     Route: 065
  6. DABIGATRAN [Suspect]
     Active Substance: DABIGATRAN
     Dosage: 5.36 MILLIGRAM, ONCE A DAY (5.3571 MILLIGRAM DAILY)
     Route: 065
  7. METOPROLOL [Suspect]
     Active Substance: METOPROLOL
     Indication: Arrhythmia
     Dosage: 25 MILLIGRAM, ONCE A DAY (QD)
     Route: 065
  8. METOPROLOL [Suspect]
     Active Substance: METOPROLOL
     Indication: Atrial fibrillation
     Dosage: 25 MILLIGRAM, ONCE A DAY(25 MILLIGRAM DAILY; METOPROLOL SUCCINATE 25 MG ONCE DAILY IN COMBINATION WI
     Route: 065
  9. PROPAFENONE [Suspect]
     Active Substance: PROPAFENONE
     Indication: Arrhythmia
     Dosage: 150 MG, TID
     Route: 065
  10. PROPAFENONE [Suspect]
     Active Substance: PROPAFENONE
     Indication: Atrial fibrillation
     Dosage: 450 MILLIGRAM DAILY; METOPROLOL SUCCINATE 25 MG ONCE DAILY IN COMBINATION WITH PROPAFENONE DOSE OF 1
     Route: 065

REACTIONS (9)
  - Transient ischaemic attack [Unknown]
  - Facial asymmetry [Recovered/Resolved]
  - Epistaxis [Recovered/Resolved]
  - Drug ineffective [Unknown]
  - Muscular weakness [Recovered/Resolved]
  - Speech disorder [Recovered/Resolved]
  - Heart rate irregular [Unknown]
  - Dyspnoea [Unknown]
  - Fatigue [Unknown]
